FAERS Safety Report 4499641-5 (Version None)
Quarter: 2004Q4

REPORT INFORMATION
  Report Type: 
  Country: None (occurrence: None)
  Receive Date: 20041108
  Receipt Date: 20041027
  Transmission Date: 20050328
  Serious: Yes (Death, Hospitalization, Other)
  Sender: FDA-Public Use
  Company Number: 2004070529

PATIENT
  Age: 71 Year
  Sex: Male
  Weight: 76 kg

DRUGS (5)
  1. LIPITOR [Suspect]
     Indication: HYPERTENSION
     Dosage: 10 MG (10 MG, 1 IN D), ORAL
     Route: 048
     Dates: start: 20020501
  2. ATENOLOL [Suspect]
     Indication: HYPERTENSION
     Dosage: 25 MG (25 MG, 1IN 1 D), ORAL
     Route: 048
  3. BENDROFLUMETHIAZIDE (BENDROFLUMTHIAZIDE) [Concomitant]
  4. GLICLAZIDE (GLICLAZIDE) [Concomitant]
  5. ASPIRIN [Concomitant]

REACTIONS (13)
  - ALANINE AMINOTRANSFERASE INCREASED [None]
  - BLOOD ALKALINE PHOSPHATASE INCREASED [None]
  - BODY MASS INDEX DECREASED [None]
  - CIRCULATORY COLLAPSE [None]
  - GAMMA-GLUTAMYLTRANSFERASE INCREASED [None]
  - GLYCOSYLATED HAEMOGLOBIN INCREASED [None]
  - HAEMATOCRIT DECREASED [None]
  - HEART RATE INCREASED [None]
  - JAUNDICE [None]
  - PANCREATIC CARCINOMA [None]
  - RED BLOOD CELL COUNT DECREASED [None]
  - RED CELL DISTRIBUTION WIDTH INCREASED [None]
  - TOTAL CHOLESTEROL/HDL RATIO ABNORMAL [None]
